FAERS Safety Report 25480874 (Version 3)
Quarter: 2025Q3

REPORT INFORMATION
  Report Type: Report from Study
  Country: US (occurrence: US)
  Receive Date: 20250625
  Receipt Date: 20250806
  Transmission Date: 20251021
  Serious: No
  Sender: MALLINCKRODT
  Company Number: US-MALLINCKRODT-MNK202503664

PATIENT
  Age: 52 Year
  Sex: Female
  Weight: 132 kg

DRUGS (2)
  1. CORTICOTROPIN [Suspect]
     Active Substance: CORTICOTROPIN
     Indication: Iridocyclitis
     Route: 058
     Dates: start: 20250519, end: 20250630
  2. CORTICOTROPIN [Suspect]
     Active Substance: CORTICOTROPIN
     Dates: start: 2025, end: 20250709

REACTIONS (3)
  - Illness [Unknown]
  - Aphonia [Unknown]
  - Infection [Unknown]

NARRATIVE: CASE EVENT DATE: 20250501
